FAERS Safety Report 4370531-1 (Version None)
Quarter: 2004Q2

REPORT INFORMATION
  Report Type: 
  Country: None (occurrence: None)
  Receive Date: 20040528
  Receipt Date: 20040520
  Transmission Date: 20050107
  Serious: Yes (Hospitalization)
  Sender: FDA-Public Use
  Company Number: US-JNJFOC-20040504718

PATIENT

DRUGS (2)
  1. CONCERTA [Suspect]
     Dosage: ORAL
     Route: 048
  2. SEROQUEL [Concomitant]

REACTIONS (1)
  - MOVEMENT DISORDER [None]
